FAERS Safety Report 19404873 (Version 4)
Quarter: 2021Q3

REPORT INFORMATION
  Report Type: Spontaneous
  Country: US (occurrence: US)
  Receive Date: 20210611
  Receipt Date: 20210716
  Transmission Date: 20211014
  Serious: No
  Sender: FDA-Public Use
  Company Number: US-GLAXOSMITHKLINE-US2021122465

PATIENT
  Sex: Female

DRUGS (1)
  1. ZEJULA [Suspect]
     Active Substance: NIRAPARIB
     Indication: OVARIAN CANCER
     Dosage: 100 MG, QD
     Route: 048
     Dates: start: 20210531

REACTIONS (7)
  - Red blood cell count decreased [Unknown]
  - White blood cell count decreased [Unknown]
  - Blood pressure fluctuation [Unknown]
  - Pain of skin [Unknown]
  - Blood pressure increased [Recovering/Resolving]
  - Photosensitivity reaction [Unknown]
  - Platelet count decreased [Unknown]
